FAERS Safety Report 7496102-6 (Version None)
Quarter: 2011Q2

REPORT INFORMATION
  Report Type: 
  Country: None (occurrence: None)
  Receive Date: 20110520
  Receipt Date: 20110520
  Transmission Date: 20111010
  Serious: No
  Sender: FDA-Public Use
  Company Number: None

PATIENT

DRUGS (3)
  1. METFORMIN HCL [Suspect]
     Indication: ABDOMINAL DISCOMFORT
     Dosage: PO
     Route: 048
     Dates: start: 20060101
  2. METFORMIN HCL [Suspect]
     Indication: HEADACHE
     Dosage: PO
     Route: 048
     Dates: start: 20060101
  3. METFORMIN HCL [Suspect]
     Indication: NAUSEA
     Dosage: PO
     Route: 048
     Dates: start: 20060101

REACTIONS (4)
  - HEADACHE [None]
  - NAUSEA [None]
  - ABDOMINAL DISCOMFORT [None]
  - PRODUCT SUBSTITUTION ISSUE [None]
